FAERS Safety Report 10013606 (Version 2)
Quarter: 2014Q1

REPORT INFORMATION
  Report Type: Spontaneous
  Country: SK (occurrence: SK)
  Receive Date: 20140315
  Receipt Date: 20140329
  Transmission Date: 20141002
  Serious: Yes (Death)
  Sender: FDA-Public Use
  Company Number: SK-ROCHE-1365122

PATIENT
  Age: 67 Year
  Sex: Female
  Weight: 71 kg

DRUGS (6)
  1. TOCILIZUMAB [Suspect]
     Indication: RHEUMATOID ARTHRITIS
     Route: 042
     Dates: start: 20100630, end: 20140107
  2. MELOXICAM [Concomitant]
     Indication: RHEUMATOID ARTHRITIS
     Route: 048
  3. LODOZ [Concomitant]
     Indication: HYPERTENSION
     Route: 048
  4. LUSOPRESS [Concomitant]
     Indication: HYPERTENSION
     Route: 048
  5. CYNT (SLOVAKIA) [Concomitant]
     Indication: HYPERTENSION
     Route: 048
  6. ATORIS [Concomitant]
     Indication: HYPERLIPIDAEMIA
     Route: 048

REACTIONS (1)
  - Aortic dissection [Fatal]
